FAERS Safety Report 8898515 (Version 2)
Quarter: 2013Q1

REPORT INFORMATION
  Report Type: Spontaneous
  Country: US (occurrence: US)
  Receive Date: 20121109
  Receipt Date: 20130205
  Transmission Date: 20140127
  Serious: No
  Sender: FDA-Public Use
  Company Number: US-B.I. PHARMACEUTICALS,INC./RIDGEFIELD-2012-BP-27239BP

PATIENT
  Sex: Female
  Weight: 91 kg

DRUGS (1)
  1. TRADJENTA [Suspect]
     Indication: DIABETES MELLITUS
     Dosage: 5 MG
     Route: 048
     Dates: start: 201210

REACTIONS (3)
  - Somnolence [Recovered/Resolved]
  - Lethargy [Recovered/Resolved]
  - Herpes zoster [Recovered/Resolved]
